FAERS Safety Report 21088896 (Version 1)
Quarter: 2022Q3

REPORT INFORMATION
  Report Type: Spontaneous
  Country: CN (occurrence: CN)
  Receive Date: 20220715
  Receipt Date: 20220715
  Transmission Date: 20221027
  Serious: Yes (Hospitalization, Other)
  Sender: FDA-Public Use
  Company Number: CN-009507513-2207CHN002739

PATIENT
  Age: 64 Year
  Sex: Female
  Weight: 60 kg

DRUGS (13)
  1. CILASTATIN SODIUM\IMIPENEM [Suspect]
     Active Substance: CILASTATIN SODIUM\IMIPENEM
     Indication: Pneumonia
     Dosage: 1 G (ALSO REPORTED AS 1 BAG), Q6H
     Route: 041
     Dates: start: 20220602, end: 20220609
  2. BEVACIZUMAB [Suspect]
     Active Substance: BEVACIZUMAB
     Indication: Lung neoplasm malignant
     Dosage: 400 MG, D1, QD
     Route: 041
     Dates: start: 20220527, end: 20220527
  3. DURVALUMAB [Concomitant]
     Active Substance: DURVALUMAB
     Indication: Lung neoplasm malignant
     Dosage: 500 MG, D0 (REPORTED AS ^DO^), QD
     Route: 041
     Dates: start: 20220526, end: 20220526
  4. METOCLOPRAMIDE [Concomitant]
     Active Substance: METOCLOPRAMIDE
     Dosage: UNK
     Route: 030
     Dates: start: 202205, end: 202205
  5. PACLITAXEL [Concomitant]
     Active Substance: PACLITAXEL
     Indication: Lung neoplasm malignant
     Dosage: 400 MG, D1,QD
     Route: 041
     Dates: start: 20220527, end: 20220527
  6. DEXAMETHASONE SODIUM PHOSPHATE [Concomitant]
     Active Substance: DEXAMETHASONE SODIUM PHOSPHATE
     Dosage: 5 MILLIGRAM, QD
     Dates: start: 202205, end: 202205
  7. MOXIFLOXACIN HYDROCHLORIDE [Concomitant]
     Active Substance: MOXIFLOXACIN HYDROCHLORIDE
     Indication: Pneumonia
     Dosage: 0.4 G, QD
     Route: 048
     Dates: start: 20220530, end: 20220530
  8. ONDANSETRON [Concomitant]
     Active Substance: ONDANSETRON
     Indication: Hyperhidrosis
     Dosage: 8 MILLIGRAM, QD
     Route: 041
     Dates: start: 20220527
  9. ONDANSETRON [Concomitant]
     Active Substance: ONDANSETRON
     Indication: Nausea
  10. LORATADINE [Concomitant]
     Active Substance: LORATADINE
     Indication: Antiallergic therapy
     Dosage: 10 MILLIGRAM, QD
     Route: 048
     Dates: start: 20220527
  11. SODIUM BICARBONATE [Concomitant]
     Active Substance: SODIUM BICARBONATE
     Indication: Therapeutic gargle
     Dosage: USED FOR GARGLING
  12. CEFTAZIDIME [Concomitant]
     Active Substance: CEFTAZIDIME
     Indication: Anti-infective therapy
     Dosage: 1.5 GRAM, Q12H
     Route: 041
     Dates: start: 20220601
  13. CEFOPERAZONE SODIUM\SULBACTAM SODIUM [Concomitant]
     Active Substance: CEFOPERAZONE SODIUM\SULBACTAM SODIUM
     Indication: Pneumonia
     Dosage: 3 G, Q8H
     Route: 041
     Dates: start: 20220609, end: 20220618

REACTIONS (3)
  - Epilepsy [Recovering/Resolving]
  - Myelosuppression [Unknown]
  - Drug eruption [Unknown]

NARRATIVE: CASE EVENT DATE: 20220603
